FAERS Safety Report 6383934-0 (Version None)
Quarter: 2009Q3

REPORT INFORMATION
  Report Type: 
  Country: None (occurrence: None)
  Receive Date: 20090928
  Receipt Date: 20090915
  Transmission Date: 20100115
  Serious: Yes (Life-Threatening)
  Sender: FDA-Public Use
  Company Number: 1000009057

PATIENT
  Age: 80 Year
  Sex: Female

DRUGS (7)
  1. CITALOPRAM HYDROBROMIDE [Suspect]
     Indication: DEPRESSION
     Dosage: 20 MG (20 MG, 1 IN 1 D), ORAL
     Route: 048
     Dates: start: 20090326, end: 20090406
  2. PREVISCAN [Suspect]
     Indication: ATRIAL FIBRILLATION
     Dosage: 5 MG (5 MG, 1 IN 1 D), ORAL
     Route: 048
     Dates: end: 20090406
  3. PREVISCAN [Suspect]
     Indication: ATRIAL FIBRILLATION
     Route: 048
  4. SOLUPRED [Concomitant]
  5. CETORNAN [Concomitant]
  6. NEXIUM [Concomitant]
  7. LASILIX [Concomitant]

REACTIONS (4)
  - ANAEMIA [None]
  - CARDIAC FAILURE [None]
  - MELAENA [None]
  - SHOCK HAEMORRHAGIC [None]
